FAERS Safety Report 17303364 (Version 2)
Quarter: 2020Q1

REPORT INFORMATION
  Report Type: Report from Study
  Country: JP (occurrence: JP)
  Receive Date: 20200122
  Receipt Date: 20200128
  Transmission Date: 20200409
  Serious: Yes (Hospitalization)
  Sender: FDA-Public Use
  Company Number: JP-EISAI MEDICAL RESEARCH-EC-2020-068718

PATIENT
  Age: 89 Year
  Sex: Male
  Weight: 76 kg

DRUGS (13)
  1. ADALAT CC [Concomitant]
     Active Substance: NIFEDIPINE
  2. SILECE [Concomitant]
     Active Substance: FLUNITRAZEPAM
  3. MYSER [Concomitant]
  4. BIO-THREE [Concomitant]
     Active Substance: HERBALS
  5. LENVATINIB [Suspect]
     Active Substance: LENVATINIB
     Indication: HEPATOCELLULAR CARCINOMA
     Route: 048
     Dates: start: 20191212, end: 20200101
  6. ACINON [Concomitant]
     Active Substance: NIZATIDINE
  7. ACTOS [Concomitant]
     Active Substance: PIOGLITAZONE HYDROCHLORIDE
  8. BASEN OD [Concomitant]
     Active Substance: VOGLIBOSE
  9. LENVATINIB [Suspect]
     Active Substance: LENVATINIB
     Route: 048
     Dates: start: 20200102, end: 20200111
  10. NU-LOTAN [Concomitant]
     Active Substance: LOSARTAN POTASSIUM
  11. KERATINAMIN [Concomitant]
     Active Substance: UREA
  12. BAYASPIRIN [Concomitant]
     Active Substance: ASPIRIN
  13. EUGLUCON [Concomitant]
     Active Substance: GLYBURIDE

REACTIONS (1)
  - Decreased appetite [Not Recovered/Not Resolved]

NARRATIVE: CASE EVENT DATE: 20200113
